FAERS Safety Report 23678233 (Version 2)
Quarter: 2024Q2

REPORT INFORMATION
  Report Type: Spontaneous
  Country: US (occurrence: US)
  Receive Date: 20240327
  Receipt Date: 20240403
  Transmission Date: 20240716
  Serious: No
  Sender: FDA-Public Use
  Company Number: US-BIOGEN-2024BI01256966

PATIENT
  Age: 73 Year
  Sex: Female

DRUGS (60)
  1. VUMERITY [Suspect]
     Active Substance: DIROXIMEL FUMARATE
     Indication: Multiple sclerosis
     Route: 050
     Dates: start: 20201224
  2. BENADRYL [Concomitant]
     Active Substance: DIPHENHYDRAMINE HYDROCHLORIDE
     Route: 050
  3. BENADRYL [Concomitant]
     Active Substance: DIPHENHYDRAMINE HYDROCHLORIDE
     Route: 050
  4. BENADRYL [Concomitant]
     Active Substance: DIPHENHYDRAMINE HYDROCHLORIDE
     Route: 050
  5. BENADRYL [Concomitant]
     Active Substance: DIPHENHYDRAMINE HYDROCHLORIDE
     Route: 050
  6. RETAINE PM [Concomitant]
     Active Substance: MINERAL OIL\PETROLATUM
     Route: 050
  7. IPRATROPIUM BROMIDE [Concomitant]
     Active Substance: IPRATROPIUM BROMIDE\IPRATROPIUM BROMIDE ANHYDROUS
     Route: 050
  8. VITAMIN C [Concomitant]
     Active Substance: ASCORBIC ACID
     Route: 050
  9. VITAMIN D [Concomitant]
     Active Substance: VITAMIN D NOS
     Route: 050
  10. CALCIUM GLUCONATE [Concomitant]
     Active Substance: CALCIUM GLUCONATE
     Route: 050
  11. MIRALAX [Concomitant]
     Active Substance: POLYETHYLENE GLYCOL 3350
     Route: 050
  12. BUSPIRONE HCL [Concomitant]
     Active Substance: BUSPIRONE HYDROCHLORIDE
     Route: 050
  13. SYNTHROID [Concomitant]
     Active Substance: LEVOTHYROXINE SODIUM
     Route: 050
  14. OMEPRAZOLE [Concomitant]
     Active Substance: OMEPRAZOLE
     Route: 050
  15. BACLOFEN [Concomitant]
     Active Substance: BACLOFEN
     Route: 050
  16. RESTASIS [Concomitant]
     Active Substance: CYCLOSPORINE
     Dosage: 0.4ML VIAL (30/BX)
     Route: 050
  17. ZINC [Concomitant]
     Active Substance: PYRITHIONE ZINC\ZINC\ZINC CHLORIDE
     Route: 050
  18. ZINC [Concomitant]
     Active Substance: PYRITHIONE ZINC\ZINC\ZINC CHLORIDE
     Route: 050
  19. ZINC [Concomitant]
     Active Substance: PYRITHIONE ZINC\ZINC\ZINC CHLORIDE
     Route: 050
  20. ZINC [Concomitant]
     Active Substance: PYRITHIONE ZINC\ZINC\ZINC CHLORIDE
     Route: 050
  21. ROSUVASTATIN CALCIUM [Concomitant]
     Active Substance: ROSUVASTATIN CALCIUM
     Route: 050
  22. ROSUVASTATIN CALCIUM [Concomitant]
     Active Substance: ROSUVASTATIN CALCIUM
     Route: 050
  23. ROSUVASTATIN CALCIUM [Concomitant]
     Active Substance: ROSUVASTATIN CALCIUM
     Route: 050
  24. ROSUVASTATIN CALCIUM [Concomitant]
     Active Substance: ROSUVASTATIN CALCIUM
     Route: 050
  25. TYLENOL [Concomitant]
     Active Substance: ACETAMINOPHEN
     Route: 050
  26. TYLENOL [Concomitant]
     Active Substance: ACETAMINOPHEN
     Route: 050
  27. TYLENOL [Concomitant]
     Active Substance: ACETAMINOPHEN
     Route: 050
  28. TYLENOL [Concomitant]
     Active Substance: ACETAMINOPHEN
     Route: 050
  29. DILTIAZEM [Concomitant]
     Active Substance: DILTIAZEM
     Route: 050
  30. DILTIAZEM [Concomitant]
     Active Substance: DILTIAZEM
     Route: 050
  31. DILTIAZEM [Concomitant]
     Active Substance: DILTIAZEM
     Route: 050
  32. DILTIAZEM [Concomitant]
     Active Substance: DILTIAZEM
     Route: 050
  33. ELIQUIS [Concomitant]
     Active Substance: APIXABAN
     Route: 050
  34. ELIQUIS [Concomitant]
     Active Substance: APIXABAN
     Route: 050
  35. ELIQUIS [Concomitant]
     Active Substance: APIXABAN
     Route: 050
  36. ELIQUIS [Concomitant]
     Active Substance: APIXABAN
     Route: 050
  37. DOXEPIN HCL [Concomitant]
     Active Substance: DOXEPIN HYDROCHLORIDE
     Route: 050
  38. DOXEPIN HCL [Concomitant]
     Active Substance: DOXEPIN HYDROCHLORIDE
     Route: 050
  39. DOXEPIN HCL [Concomitant]
     Active Substance: DOXEPIN HYDROCHLORIDE
     Route: 050
  40. DOXEPIN HCL [Concomitant]
     Active Substance: DOXEPIN HYDROCHLORIDE
     Route: 050
  41. AMIODARONE HYDROCHLORIDE [Concomitant]
     Active Substance: AMIODARONE HYDROCHLORIDE
     Route: 050
  42. AMIODARONE HYDROCHLORIDE [Concomitant]
     Active Substance: AMIODARONE HYDROCHLORIDE
     Route: 050
  43. AMIODARONE HYDROCHLORIDE [Concomitant]
     Active Substance: AMIODARONE HYDROCHLORIDE
     Route: 050
  44. AMIODARONE HYDROCHLORIDE [Concomitant]
     Active Substance: AMIODARONE HYDROCHLORIDE
     Route: 050
  45. GABAPENTIN [Concomitant]
     Active Substance: GABAPENTIN
     Route: 050
  46. GABAPENTIN [Concomitant]
     Active Substance: GABAPENTIN
     Route: 050
  47. GABAPENTIN [Concomitant]
     Active Substance: GABAPENTIN
     Route: 050
  48. GABAPENTIN [Concomitant]
     Active Substance: GABAPENTIN
     Route: 050
  49. VENLAFAXINE HCL [Concomitant]
     Active Substance: VENLAFAXINE HYDROCHLORIDE
     Route: 050
  50. VENLAFAXINE HCL [Concomitant]
     Active Substance: VENLAFAXINE HYDROCHLORIDE
     Route: 050
  51. VENLAFAXINE HCL [Concomitant]
     Active Substance: VENLAFAXINE HYDROCHLORIDE
     Route: 050
  52. VENLAFAXINE HCL [Concomitant]
     Active Substance: VENLAFAXINE HYDROCHLORIDE
     Route: 050
  53. BIOTIN [Concomitant]
     Active Substance: BIOTIN
     Route: 050
  54. BIOTIN [Concomitant]
     Active Substance: BIOTIN
     Route: 050
  55. BIOTIN [Concomitant]
     Active Substance: BIOTIN
     Route: 050
  56. BIOTIN [Concomitant]
     Active Substance: BIOTIN
     Route: 050
  57. MAGNESIUM [Concomitant]
     Active Substance: MAGNESIUM
     Route: 050
  58. MAGNESIUM [Concomitant]
     Active Substance: MAGNESIUM
     Route: 050
  59. MAGNESIUM [Concomitant]
     Active Substance: MAGNESIUM
     Route: 050
  60. MAGNESIUM [Concomitant]
     Active Substance: MAGNESIUM
     Route: 050

REACTIONS (2)
  - Multiple sclerosis [Unknown]
  - Hot flush [Recovered/Resolved]

NARRATIVE: CASE EVENT DATE: 20240101
